FAERS Safety Report 8565304-X (Version None)
Quarter: 2012Q3

REPORT INFORMATION
  Report Type: 
  Country: None (occurrence: None)
  Receive Date: 20120723
  Receipt Date: 20120712
  Transmission Date: 20120928
  Serious: Yes (Other)
  Sender: FDA-Public Use
  Company Number: 7029888

PATIENT
  Age: 58 Year
  Sex: Female

DRUGS (7)
  1. DILTIAZEM HCL [Suspect]
     Indication: HYPERTENSION
     Dosage: 1 DF (1 DFM IN THE MORNING), ORAL
     Route: 048
     Dates: start: 20030101
  2. LANSOPRAZOLE [Concomitant]
  3. ACUILIX (ACUILIX /01307801/) (1 DF (1 DF, IN THE MORNING) [Suspect]
     Indication: HYPERTENSION
     Dosage: ORAL
     Route: 048
     Dates: start: 20030101
  4. POTASSIUM CHLORIDE [Concomitant]
  5. CRESTOR [Concomitant]
  6. LEVOTHYROXINE SODIUM [Suspect]
     Indication: THYROID CANCER
     Dosage: ORAL,
     Dates: start: 19870101, end: 20030101
  7. PRAZEPAM [Concomitant]

REACTIONS (9)
  - WEIGHT INCREASED [None]
  - LOSS OF CONSCIOUSNESS [None]
  - MALAISE [None]
  - BLOOD THYROID STIMULATING HORMONE ABNORMAL [None]
  - PRODUCT PACKAGING ISSUE [None]
  - BLOOD GLUCOSE DECREASED [None]
  - FATIGUE [None]
  - BLOOD CHOLESTEROL INCREASED [None]
  - HYPOKALAEMIA [None]
